FAERS Safety Report 9138779 (Version 1)
Quarter: 2013Q1

REPORT INFORMATION
  Report Type: Other
  Country: US (occurrence: US)
  Receive Date: 20130305
  Receipt Date: 20130305
  Transmission Date: 20140127
  Serious: No
  Sender: FDA-Public Use
  Company Number: US-ENDO PHARMACEUTICALS INC.-PERC20100127

PATIENT
  Age: 67 Year
  Sex: Female

DRUGS (22)
  1. PERCOCET [Suspect]
     Indication: PAIN
     Dosage: UNK
     Route: 048
  2. METHOTREXATE [Suspect]
     Indication: PRODUCT USED FOR UNKNOWN INDICATION
     Dosage: UNK
  3. PREDNISONE [Suspect]
     Indication: PRODUCT USED FOR UNKNOWN INDICATION
     Dosage: UNK
  4. ALPRAZOLAM [Suspect]
     Indication: ANXIETY
     Dosage: UNK
  5. MIRTAZAPINE [Suspect]
     Indication: ANXIETY
     Dosage: UNK
  6. MIRTAZAPINE [Suspect]
     Indication: DEPRESSION
  7. MIRTAZAPINE [Suspect]
     Indication: INSOMNIA
  8. ANTIBIOTIC [Suspect]
     Indication: PRODUCT USED FOR UNKNOWN INDICATION
     Dosage: UNK
  9. REMICADE [Suspect]
     Indication: RHEUMATOID ARTHRITIS
     Dosage: 200 MG
     Dates: start: 20081208
  10. PRILOSEC [Concomitant]
     Indication: PRODUCT USED FOR UNKNOWN INDICATION
     Dosage: UNK
     Route: 048
  11. FELODIPINE [Concomitant]
     Indication: PRODUCT USED FOR UNKNOWN INDICATION
     Dosage: 10 MG
     Route: 048
  12. BENICAR [Concomitant]
     Indication: PRODUCT USED FOR UNKNOWN INDICATION
     Dosage: 40 MG
     Route: 048
  13. MULTIPLE VITAMIN [Concomitant]
     Dosage: UNK
     Route: 048
  14. FOLIC ACID [Concomitant]
     Indication: PRODUCT USED FOR UNKNOWN INDICATION
     Dosage: 1 MG
     Route: 048
  15. CALCIUM PLUS VITAMIN D [Concomitant]
     Indication: PRODUCT USED FOR UNKNOWN INDICATION
     Dosage: UNK
     Route: 048
  16. PROVENTIL [Concomitant]
     Indication: DYSPNOEA
     Dosage: UNK
  17. PROVENTIL [Concomitant]
     Indication: WHEEZING
  18. VITAMIN D [Concomitant]
  19. TOPROL XL [Concomitant]
     Indication: PRODUCT USED FOR UNKNOWN INDICATION
     Dosage: UNK
     Route: 048
  20. SIMVASTATIN [Concomitant]
     Indication: PRODUCT USED FOR UNKNOWN INDICATION
     Dosage: UNK
     Route: 048
  21. PREMARIN [Concomitant]
     Indication: PRODUCT USED FOR UNKNOWN INDICATION
     Dosage: UNK
  22. NOVOLOG INSULIN [Concomitant]
     Indication: PRODUCT USED FOR UNKNOWN INDICATION
     Dosage: UNK

REACTIONS (13)
  - Adrenocortical insufficiency acute [Unknown]
  - Hypovolaemia [Recovered/Resolved]
  - Blood phosphorus decreased [Unknown]
  - Blood potassium decreased [Unknown]
  - Overdose [Unknown]
  - Septic shock [Recovered/Resolved]
  - Interstitial lung disease [Recovered/Resolved]
  - Opportunistic infection [Recovered/Resolved]
  - Blood albumin decreased [Unknown]
  - Haemoglobin decreased [Unknown]
  - Diarrhoea [Recovered/Resolved]
  - Headache [Unknown]
  - Acute respiratory failure [Unknown]
